FAERS Safety Report 8456733-3 (Version None)
Quarter: 2012Q2

REPORT INFORMATION
  Report Type: 
  Country: None (occurrence: None)
  Receive Date: 20120323
  Receipt Date: 20111117
  Transmission Date: 20120825
  Serious: Yes (Other)
  Sender: FDA-Public Use
  Company Number: 163-21880-11091809

PATIENT
  Age: 70 Year
  Sex: Female
  Weight: 69.8539 kg

DRUGS (13)
  1. ZOMETA [Concomitant]
  2. NYSTATIN [Concomitant]
  3. CYCLOBENZAPRINE [Concomitant]
  4. CALCIUM + D(CALCIUM D3 ^STADA^) [Concomitant]
  5. PRILOSEC OTC [Concomitant]
  6. TRAMADOL HCL [Concomitant]
  7. CHLORASEPTIC (PHENOL) [Concomitant]
  8. REFRESH TEARS (CARMELLOSE SODIUM) [Concomitant]
  9. REVLIMID [Suspect]
     Indication: MULTIPLE MYELOMA
     Dosage: 10 MG, DAILY X 21 DAYS, PO : 10 MG, X 21 DAYS, PO : 10 MG, DAILY X 18 DAYS, PO
     Route: 048
     Dates: start: 20110901
  10. REVLIMID [Suspect]
     Indication: MULTIPLE MYELOMA
     Dosage: 10 MG, DAILY X 21 DAYS, PO : 10 MG, X 21 DAYS, PO : 10 MG, DAILY X 18 DAYS, PO
     Route: 048
     Dates: start: 20100801
  11. REVLIMID [Suspect]
     Indication: MULTIPLE MYELOMA
     Dosage: 10 MG, DAILY X 21 DAYS, PO : 10 MG, X 21 DAYS, PO : 10 MG, DAILY X 18 DAYS, PO
     Route: 048
     Dates: start: 20110817
  12. DEXAMETHASONE [Concomitant]
  13. ASPIRIN [Concomitant]

REACTIONS (2)
  - COMPRESSION FRACTURE [None]
  - PAIN [None]
